FAERS Safety Report 9491834 (Version 1)
Quarter: 2013Q3

REPORT INFORMATION
  Report Type: Not Available
  Country: US (occurrence: US)
  Receive Date: 20130919
  Receipt Date: 20130919
  Transmission Date: 20140515
  Serious: Yes (Hospitalization)
  Sender: FDA-Public Use
  Company Number: US-LUNDBECK-DKLU1083496

PATIENT
  Age: 7 Year
  Sex: Male

DRUGS (6)
  1. SABRIL (FOR ORAL SOLUTION) [Suspect]
     Indication: EPILEPSY
     Route: 048
     Dates: start: 20120710, end: 20120726
  2. DIAZEPAM [Concomitant]
     Indication: PRODUCT USED FOR UNKNOWN INDICATION
  3. FELBAMATE [Concomitant]
     Indication: PRODUCT USED FOR UNKNOWN INDICATION
  4. ONFI [Concomitant]
     Indication: PRODUCT USED FOR UNKNOWN INDICATION
  5. DEPAKOTE [Concomitant]
     Indication: PRODUCT USED FOR UNKNOWN INDICATION
  6. ZARONTIN [Concomitant]
     Indication: PRODUCT USED FOR UNKNOWN INDICATION

REACTIONS (2)
  - Hospitalisation [Unknown]
  - Drug ineffective [Unknown]
